FAERS Safety Report 4531722-X (Version None)
Quarter: 2004Q4

REPORT INFORMATION
  Report Type: 
  Country: None (occurrence: None)
  Receive Date: 20041206
  Receipt Date: 20040922
  Transmission Date: 20050328
  Serious: No
  Sender: FDA-Public Use
  Company Number: USA040979052

PATIENT
  Age: 38 Year
  Sex: Female

DRUGS (1)
  1. CYMBALTA [Suspect]
     Dates: start: 20040910

REACTIONS (1)
  - SWELLING [None]
